FAERS Safety Report 4965850-1 (Version None)
Quarter: 2006Q2

REPORT INFORMATION
  Report Type: 
  Country: None (occurrence: None)
  Receive Date: 20060407
  Receipt Date: 20060317
  Transmission Date: 20061013
  Serious: Yes (Other)
  Sender: FDA-Public Use
  Company Number: PHEH2006US03770

PATIENT
  Age: 51 Year
  Sex: Female
  Weight: 79.818 kg

DRUGS (4)
  1. FEMARA [Suspect]
     Indication: BREAST CANCER
     Dosage: 2.5 MG, QD
     Route: 048
     Dates: start: 20031229, end: 20060317
  2. LIPITOR [Concomitant]
     Indication: HYPERCHOLESTEROLAEMIA
     Dosage: 10 MG, QD
     Route: 048
  3. PROZAC [Concomitant]
     Indication: DEPRESSION
     Dosage: 40 MG, QD
     Route: 048
  4. PRILOSEC [Concomitant]
     Dosage: 20 MG, QD

REACTIONS (2)
  - RETINAL VEIN OCCLUSION [None]
  - VISUAL FIELD DEFECT [None]
